FAERS Safety Report 5472548-2 (Version None)
Quarter: 2007Q3

REPORT INFORMATION
  Report Type: 
  Country: None (occurrence: None)
  Receive Date: 20070926
  Receipt Date: 20070911
  Transmission Date: 20080115
  Serious: Yes (Death)
  Sender: FDA-Public Use
  Company Number: 1-15316002

PATIENT
  Sex: Male

DRUGS (2)
  1. AMMONUL [Suspect]
     Indication: AMINO ACID METABOLISM DISORDER
     Dosage: 5 ML/24 HOURS/IV
     Route: 042
     Dates: start: 20070906, end: 20070910
  2. SODIUM BENZOATE INJECTION (MANUFACTURER UNKNOWN) [Suspect]
     Indication: AMINO ACID METABOLISM DISORDER
     Dosage: IV
     Route: 042
     Dates: start: 20070901, end: 20070901

REACTIONS (5)
  - AMMONIA INCREASED [None]
  - DISEASE PROGRESSION [None]
  - MULTI-ORGAN FAILURE [None]
  - NO THERAPEUTIC RESPONSE [None]
  - SHOCK [None]
